FAERS Safety Report 10066399 (Version 1)
Quarter: 2014Q2

REPORT INFORMATION
  Report Type: Spontaneous
  Country: US (occurrence: US)
  Receive Date: 20140408
  Receipt Date: 20140408
  Transmission Date: 20141212
  Serious: Yes (Other)
  Sender: FDA-Public Use
  Company Number: US-BAYER-2014-048635

PATIENT
  Age: 22 Year
  Sex: Male

DRUGS (1)
  1. NAPROXEN SODIUM ({= 220 MG) [Suspect]

REACTIONS (1)
  - Drug eruption [None]
